FAERS Safety Report 23488114 (Version 1)
Quarter: 2024Q1

REPORT INFORMATION
  Report Type: Spontaneous
  Country: DE (occurrence: DE)
  Receive Date: 20240206
  Receipt Date: 20240206
  Transmission Date: 20240409
  Serious: Yes (Other)
  Sender: FDA-Public Use
  Company Number: DE-BAYER-2024A019320

PATIENT
  Age: 79 Year
  Sex: Female

DRUGS (2)
  1. NAPROXEN SODIUM [Interacting]
     Active Substance: NAPROXEN\NAPROXEN SODIUM
  2. PANTOPRAZOLE [Interacting]
     Active Substance: PANTOPRAZOLE

REACTIONS (2)
  - Toxicity to various agents [None]
  - Drug interaction [None]
